FAERS Safety Report 6455373-5 (Version None)
Quarter: 2009Q4

REPORT INFORMATION
  Report Type: 
  Country: None (occurrence: None)
  Receive Date: 20091125
  Receipt Date: 20091020
  Transmission Date: 20100525
  Serious: No
  Sender: FDA-Public Use
  Company Number: US-ABBOTT-09P-163-0604134-00

PATIENT
  Sex: Female

DRUGS (7)
  1. SIMCOR [Suspect]
     Indication: DRUG USE FOR UNKNOWN INDICATION
     Dosage: 1/2 OF A 500/20MG TAB DAILY AT BEDTIME
     Route: 048
  2. DIOVAN [Concomitant]
     Indication: DRUG USE FOR UNKNOWN INDICATION
  3. TOPROL-XL [Concomitant]
     Indication: DRUG USE FOR UNKNOWN INDICATION
  4. ALEVE [Concomitant]
     Indication: PROPHYLAXIS
     Dosage: ALEVE OR ADVIL NIGHTLY
  5. ALEVE [Concomitant]
     Indication: BACK PAIN
  6. ADVIL [Concomitant]
     Indication: PROPHYLAXIS
     Dosage: ALEVE OR ADVIL NIGHTLY
  7. ADVIL [Concomitant]
     Indication: BACK PAIN

REACTIONS (1)
  - WRONG TECHNIQUE IN DRUG USAGE PROCESS [None]
